FAERS Safety Report 15961682 (Version 1)
Quarter: 2019Q1

REPORT INFORMATION
  Report Type: Spontaneous
  Country: HU (occurrence: HU)
  Receive Date: 20190214
  Receipt Date: 20190214
  Transmission Date: 20190417
  Serious: Yes (Other)
  Sender: FDA-Public Use
  Company Number: HU-TEVA-2019-HU-1012614

PATIENT
  Age: 66 Year
  Sex: Male

DRUGS (1)
  1. ACITRETIN UNK [Suspect]
     Active Substance: ACITRETIN
     Indication: PITYRIASIS RUBRA PILARIS
     Route: 065

REACTIONS (1)
  - Pemphigoid [Unknown]
